FAERS Safety Report 8286193-7 (Version None)
Quarter: 2012Q2

REPORT INFORMATION
  Report Type: 
  Country: None (occurrence: None)
  Receive Date: 20120416
  Receipt Date: 20120410
  Transmission Date: 20120825
  Serious: No
  Sender: FDA-Public Use
  Company Number: US-PFIZER INC-2012029901

PATIENT
  Sex: Female
  Weight: 63.492 kg

DRUGS (4)
  1. DETROL LA [Suspect]
     Indication: POLLAKIURIA
     Dosage: 2 MG, 1X/DAY
     Route: 048
     Dates: start: 20080101, end: 20100101
  2. DETROL LA [Suspect]
     Dosage: 1 MG DAILY
  3. DETROL LA [Suspect]
     Dosage: 4 MG DAILY
  4. DETROL LA [Suspect]
     Dosage: 4 MG, 1X/DAY
     Route: 048
     Dates: start: 20100101

REACTIONS (2)
  - INAPPROPRIATE SCHEDULE OF DRUG ADMINISTRATION [None]
  - DRUG LEVEL INCREASED [None]
